FAERS Safety Report 6464467-X (Version None)
Quarter: 2009Q4

REPORT INFORMATION
  Report Type: 
  Country: None (occurrence: None)
  Receive Date: 20091201
  Receipt Date: 20091119
  Transmission Date: 20100525
  Serious: Yes (Death, Other)
  Sender: FDA-Public Use
  Company Number: ES-AMGEN-UK376353

PATIENT
  Sex: Male

DRUGS (1)
  1. MIMPARA [Suspect]
     Indication: PRE-EXISTING DISEASE
     Route: 065

REACTIONS (3)
  - BLOOD CREATININE INCREASED [None]
  - CONDITION AGGRAVATED [None]
  - RENAL FAILURE CHRONIC [None]
